FAERS Safety Report 6868070-9 (Version None)
Quarter: 2010Q3

REPORT INFORMATION
  Report Type: 
  Country: None (occurrence: None)
  Receive Date: 20100722
  Receipt Date: 20080513
  Transmission Date: 20110219
  Serious: No
  Sender: FDA-Public Use
  Company Number: US-PFIZER INC-2008041647

PATIENT
  Sex: Female
  Weight: 47.17 kg

DRUGS (8)
  1. CHANTIX [Suspect]
     Indication: SMOKING CESSATION THERAPY
     Dates: start: 20080101, end: 20080501
  2. LEVOXYL [Concomitant]
     Indication: THYROID DISORDER
  3. NORVASC [Concomitant]
  4. PERCOCET [Concomitant]
  5. NEXIUM [Concomitant]
     Indication: OESOPHAGEAL ULCER
  6. NEXIUM [Concomitant]
     Indication: GASTRIC ULCER
  7. NEXIUM [Concomitant]
     Indication: IRRITABLE BOWEL SYNDROME
  8. LORAZEPAM [Concomitant]
     Indication: ANXIETY

REACTIONS (1)
  - NAUSEA [None]
